FAERS Safety Report 6255100-0 (Version None)
Quarter: 2009Q3

REPORT INFORMATION
  Report Type: 
  Country: None (occurrence: None)
  Receive Date: 20090702
  Receipt Date: 20090702
  Transmission Date: 20100115
  Serious: Yes (Other)
  Sender: FDA-Public Use
  Company Number: US-PFIZER INC-2009206907

PATIENT
  Sex: Female
  Weight: 66.2 kg

DRUGS (5)
  1. TOVIAZ [Suspect]
     Indication: INCONTINENCE
     Dates: start: 20090401, end: 20090401
  2. GABAPENTIN [Concomitant]
  3. BACLOFEN [Concomitant]
  4. DULOXETINE [Concomitant]
  5. STOOL SOFTENER [Concomitant]

REACTIONS (4)
  - CONFUSIONAL STATE [None]
  - DYSARTHRIA [None]
  - FATIGUE [None]
  - NAUSEA [None]
